FAERS Safety Report 6568653-X (Version None)
Quarter: 2010Q1

REPORT INFORMATION
  Report Type: 
  Country: None (occurrence: None)
  Receive Date: 20100203
  Receipt Date: 20100122
  Transmission Date: 20100710
  Serious: Yes (Disabling)
  Sender: FDA-Public Use
  Company Number: NL-AMGEN-US387212

PATIENT
  Age: 62 Year
  Sex: Male
  Weight: 70 kg

DRUGS (1)
  1. ENBREL [Suspect]
     Indication: RHEUMATOID ARTHRITIS
     Dosage: ONCE A WEEK
     Dates: start: 20091201

REACTIONS (7)
  - INCORRECT STORAGE OF DRUG [None]
  - MALAISE [None]
  - PAIN IN EXTREMITY [None]
  - POOR QUALITY DRUG ADMINISTERED [None]
  - PYREXIA [None]
  - VISUAL ACUITY REDUCED [None]
  - WALKING DISABILITY [None]
